FAERS Safety Report 14296583 (Version 1)
Quarter: 2017Q4

REPORT INFORMATION
  Report Type: Report from Study
  Country: ZA (occurrence: ZA)
  Receive Date: 20171218
  Receipt Date: 20171218
  Transmission Date: 20180321
  Serious: Yes (Hospitalization)
  Sender: FDA-Public Use
  Company Number: ZA-JNJFOC-20171128885

PATIENT
  Age: 59 Year
  Sex: Male
  Weight: 85 kg

DRUGS (3)
  1. VENOFER [Concomitant]
     Active Substance: IRON SUCROSE
     Indication: ANAEMIA
     Route: 065
     Dates: start: 20171017
  2. REVELLEX [Suspect]
     Active Substance: INFLIXIMAB
     Indication: CROHN^S DISEASE
     Route: 042
     Dates: start: 20171017
  3. REVELLEX [Suspect]
     Active Substance: INFLIXIMAB
     Indication: CROHN^S DISEASE
     Route: 042
     Dates: start: 201708

REACTIONS (1)
  - Cholangitis sclerosing [Unknown]

NARRATIVE: CASE EVENT DATE: 20171116
